FAERS Safety Report 7639571-0 (Version None)
Quarter: 2011Q3

REPORT INFORMATION
  Report Type: 
  Country: None (occurrence: None)
  Receive Date: 20110721
  Receipt Date: 20110706
  Transmission Date: 20111222
  Serious: Yes (Hospitalization)
  Sender: FDA-Public Use
  Company Number: EU-2011-10120

PATIENT
  Age: 78 Year
  Sex: Female

DRUGS (1)
  1. PLETAL [Suspect]
     Indication: ARTERIAL DISORDER
     Dosage: 50 MG, ORAL
     Route: 048
     Dates: start: 20110523

REACTIONS (1)
  - TACHYARRHYTHMIA [None]
